FAERS Safety Report 12550495 (Version 1)
Quarter: 2016Q3

REPORT INFORMATION
  Report Type: Spontaneous
  Country: DE (occurrence: DE)
  Receive Date: 20160712
  Receipt Date: 20160712
  Transmission Date: 20161109
  Serious: Yes (Disabling)
  Sender: FDA-Public Use
  Company Number: GXKR2016DE003192

PATIENT

DRUGS (2)
  1. SERTRALINE [Suspect]
     Active Substance: SERTRALINE HYDROCHLORIDE
     Indication: DEPRESSION
     Dosage: UNK UKN, UNK
     Route: 048
  2. VENLAFAXINE [Suspect]
     Active Substance: VENLAFAXINE HYDROCHLORIDE
     Indication: DEPRESSION
     Dosage: 75 MG, UNK
     Route: 048

REACTIONS (4)
  - Hepatic enzyme increased [Unknown]
  - Weight increased [Recovering/Resolving]
  - Intentional self-injury [Recovered/Resolved with Sequelae]
  - Sedation [Unknown]

NARRATIVE: CASE EVENT DATE: 2013
